FAERS Safety Report 4865848-8 (Version None)
Quarter: 2005Q4

REPORT INFORMATION
  Report Type: 
  Country: None (occurrence: None)
  Receive Date: 20051220
  Receipt Date: 20051207
  Transmission Date: 20060501
  Serious: Yes (Hospitalization, Other)
  Sender: FDA-Public Use
  Company Number: 2005165524

PATIENT
  Sex: Female
  Weight: 95 kg

DRUGS (1)
  1. AROMASIN [Suspect]
     Indication: BREAST CANCER
     Dosage: 25 MG (25 MG, EVERY DAY), ORAL
     Route: 048
     Dates: start: 20051001, end: 20050101

REACTIONS (7)
  - DIPLOPIA [None]
  - DIZZINESS [None]
  - ERYSIPELAS [None]
  - FALL [None]
  - HEADACHE [None]
  - PAPILLOEDEMA [None]
  - TINNITUS [None]
